FAERS Safety Report 9236165 (Version 3)
Quarter: 2013Q3

REPORT INFORMATION
  Report Type: Report from Study
  Country: CA (occurrence: CA)
  Receive Date: 20130417
  Receipt Date: 20130827
  Transmission Date: 20140515
  Serious: Yes (Life-Threatening, Other)
  Sender: FDA-Public Use
  Company Number: CA-JNJFOC-20130406144

PATIENT
  Age: 69 Year
  Sex: Female
  Weight: 44.91 kg

DRUGS (6)
  1. REMICADE [Suspect]
     Indication: COLITIS ULCERATIVE
     Route: 042
     Dates: start: 20110524
  2. RAMIPRIL [Concomitant]
     Route: 065
  3. AMLODIPINE [Concomitant]
     Route: 065
  4. ASACOL [Concomitant]
     Route: 065
  5. AZATHIOPRINE [Concomitant]
     Route: 065
  6. SPIRIVA [Concomitant]
     Route: 065

REACTIONS (4)
  - Lung neoplasm [Not Recovered/Not Resolved]
  - Speech disorder [Unknown]
  - Malaise [Unknown]
  - Dyspnoea [Recovered/Resolved]
